FAERS Safety Report 13727313 (Version 3)
Quarter: 2017Q4

REPORT INFORMATION
  Report Type: Report from Study
  Country: US (occurrence: US)
  Receive Date: 20170707
  Receipt Date: 20171027
  Transmission Date: 20180320
  Serious: Yes (Hospitalization, Other)
  Sender: FDA-Public Use
  Company Number: US-JNJFOC-20170221669

PATIENT
  Age: 64 Year
  Sex: Female

DRUGS (22)
  1. IMBRUVICA [Suspect]
     Active Substance: IBRUTINIB
     Indication: WALDENSTROM^S MACROGLOBULINAEMIA
     Route: 048
     Dates: start: 20170214, end: 20170701
  2. TRETINOIN. [Concomitant]
     Active Substance: TRETINOIN
  3. DOXORUBICIN [Concomitant]
     Active Substance: DOXORUBICIN
  4. CLINDAGEL [Concomitant]
     Active Substance: CLINDAMYCIN PHOSPHATE
  5. CALCIUM [Concomitant]
     Active Substance: CALCIUM
  6. R CHOP [Suspect]
     Active Substance: CYCLOPHOSPHAMIDE\DOXORUBICIN\PREDNISONE\RITUXIMAB\VINCRISTINE
     Indication: DIFFUSE LARGE B-CELL LYMPHOMA
     Route: 065
  7. R CHOP [Suspect]
     Active Substance: CYCLOPHOSPHAMIDE\DOXORUBICIN\PREDNISONE\RITUXIMAB\VINCRISTINE
     Indication: WALDENSTROM^S MACROGLOBULINAEMIA
     Route: 042
  8. PROCHLORPERAZINE. [Concomitant]
     Active Substance: PROCHLORPERAZINE
  9. RITUXAN [Concomitant]
     Active Substance: RITUXIMAB
  10. AZELAIC ACID. [Concomitant]
     Active Substance: AZELAIC ACID
  11. IMBRUVICA [Suspect]
     Active Substance: IBRUTINIB
     Indication: WALDENSTROM^S MACROGLOBULINAEMIA
     Route: 048
     Dates: start: 20170214, end: 2017
  12. CYCLOPHOSPHAMIDE. [Concomitant]
     Active Substance: CYCLOPHOSPHAMIDE
  13. FLAXSEED [Concomitant]
     Active Substance: FLAX SEED
  14. VALACYCLOVIR [Concomitant]
     Active Substance: VALACYCLOVIR HYDROCHLORIDE
  15. IMBRUVICA [Suspect]
     Active Substance: IBRUTINIB
     Indication: WALDENSTROM^S MACROGLOBULINAEMIA
     Route: 048
     Dates: start: 20170628
  16. VITAMIN D [Concomitant]
     Active Substance: CHOLECALCIFEROL
  17. IMBRUVICA [Suspect]
     Active Substance: IBRUTINIB
     Indication: WALDENSTROM^S MACROGLOBULINAEMIA
     Route: 048
     Dates: start: 20170214, end: 20170614
  18. MULTIVITAMINS [Concomitant]
     Active Substance: VITAMINS
  19. VINCRISTINE SULFATE. [Concomitant]
     Active Substance: VINCRISTINE SULFATE
  20. PREDNISONE. [Concomitant]
     Active Substance: PREDNISONE
  21. VITAMIN C [Concomitant]
     Active Substance: ASCORBIC ACID
  22. PANTOPRAZOLE [Concomitant]
     Active Substance: PANTOPRAZOLE

REACTIONS (28)
  - Pyrexia [Recovered/Resolved]
  - Asthenia [Unknown]
  - Weight increased [Unknown]
  - Blood count abnormal [Not Recovered/Not Resolved]
  - Flatulence [Recovered/Resolved]
  - Blood pressure systolic decreased [Recovering/Resolving]
  - Atrial fibrillation [Recovered/Resolved]
  - Oral pain [Unknown]
  - Vomiting [Unknown]
  - White blood cell count decreased [Recovered/Resolved]
  - Abdominal discomfort [Recovering/Resolving]
  - Neutrophil count decreased [Unknown]
  - Immunodeficiency [Unknown]
  - Wound [Unknown]
  - Constipation [Unknown]
  - Loss of consciousness [Recovered/Resolved]
  - Dizziness [Recovered/Resolved]
  - Blood electrolytes abnormal [Recovered/Resolved]
  - Feeling abnormal [Unknown]
  - Nausea [Recovered/Resolved]
  - Diarrhoea [Unknown]
  - Platelet count decreased [Recovered/Resolved]
  - Influenza [Recovered/Resolved]
  - Dry skin [Not Recovered/Not Resolved]
  - Abdominal pain upper [Recovering/Resolving]
  - Palpitations [Unknown]
  - Malaise [Not Recovered/Not Resolved]
  - Skin fissures [Not Recovered/Not Resolved]

NARRATIVE: CASE EVENT DATE: 201702
